FAERS Safety Report 10385953 (Version 2)
Quarter: 2014Q4

REPORT INFORMATION
  Report Type: Spontaneous
  Country: US (occurrence: US)
  Receive Date: 20140814
  Receipt Date: 20141023
  Transmission Date: 20150528
  Serious: No
  Sender: FDA-Public Use
  Company Number: US-GILEAD-2014-0111792

PATIENT
  Age: 81 Year
  Sex: Female

DRUGS (3)
  1. LETAIRIS [Suspect]
     Active Substance: AMBRISENTAN
     Indication: CREST SYNDROME
  2. LETAIRIS [Suspect]
     Active Substance: AMBRISENTAN
     Indication: PULMONARY HYPERTENSION
     Dosage: 5 MG, QD
     Route: 065
     Dates: start: 20130607
  3. ADCIRCA [Concomitant]
     Active Substance: TADALAFIL

REACTIONS (8)
  - Hypotension [Unknown]
  - Flushing [Unknown]
  - Feeling cold [Unknown]
  - Chest discomfort [Unknown]
  - Heart rate increased [Unknown]
  - Tremor [Unknown]
  - Anxiety [Unknown]
  - Feeling hot [Unknown]

NARRATIVE: CASE EVENT DATE: 201408
